FAERS Safety Report 4829860-7 (Version None)
Quarter: 2005Q4

REPORT INFORMATION
  Report Type: 
  Country: None (occurrence: None)
  Receive Date: 20051115
  Receipt Date: 20051102
  Transmission Date: 20060501
  Serious: Yes (Other)
  Sender: FDA-Public Use
  Company Number: 2005125959

PATIENT
  Sex: Female

DRUGS (8)
  1. XALATAN [Suspect]
     Indication: OPEN ANGLE GLAUCOMA
     Dosage: 3 MCG DAILY OPTHALAMIC
     Route: 047
  2. EPOGEN [Concomitant]
  3. CELEXA [Concomitant]
  4. OCUPRESS [Concomitant]
  5. NPH INSULIN [Concomitant]
  6. HUMALOG [Concomitant]
  7. ERYTHROMYCIN [Concomitant]
  8. LENTE INSULIN [Concomitant]

REACTIONS (4)
  - BLINDNESS [None]
  - CONDITION AGGRAVATED [None]
  - GLAUCOMA [None]
  - INCORRECT DOSE ADMINISTERED [None]
